FAERS Safety Report 24732712 (Version 1)
Quarter: 2024Q4

REPORT INFORMATION
  Report Type: Report from Study
  Country: US (occurrence: US)
  Receive Date: 20241213
  Receipt Date: 20241213
  Transmission Date: 20250115
  Serious: Yes (Other)
  Sender: TAKEDA
  Company Number: US-TAKEDA-2023TUS093957

PATIENT
  Age: 12 Year
  Sex: Female

DRUGS (6)
  1. VON WILLEBRAND FACTOR (RECOMBINANT) [Suspect]
     Active Substance: VON WILLEBRAND FACTOR (RECOMBINANT)
     Indication: Haemorrhage
     Dosage: 2600 INTERNATIONAL UNIT
  2. VON WILLEBRAND FACTOR (RECOMBINANT) [Suspect]
     Active Substance: VON WILLEBRAND FACTOR (RECOMBINANT)
     Dosage: 2600 INTERNATIONAL UNIT
  3. VON WILLEBRAND FACTOR (RECOMBINANT) [Suspect]
     Active Substance: VON WILLEBRAND FACTOR (RECOMBINANT)
     Dosage: 2520 INTERNATIONAL UNIT
  4. VON WILLEBRAND FACTOR (RECOMBINANT) [Suspect]
     Active Substance: VON WILLEBRAND FACTOR (RECOMBINANT)
     Dosage: 2600 INTERNATIONAL UNIT
  5. VON WILLEBRAND FACTOR (RECOMBINANT) [Suspect]
     Active Substance: VON WILLEBRAND FACTOR (RECOMBINANT)
     Dosage: 2600 INTERNATIONAL UNIT
  6. VON WILLEBRAND FACTOR (RECOMBINANT) [Suspect]
     Active Substance: VON WILLEBRAND FACTOR (RECOMBINANT)
     Dosage: 3000 INTERNATIONAL UNIT

REACTIONS (13)
  - Contusion [Unknown]
  - Drug intolerance [Unknown]
  - Infusion site irritation [Unknown]
  - Infusion site erythema [Unknown]
  - Poor venous access [Unknown]
  - Nasopharyngitis [Unknown]
  - Dehydration [Unknown]
  - Fall [Unknown]
  - Product container issue [Unknown]
  - Wrong technique in product usage process [Unknown]
  - Incorrect dose administered [Unknown]
  - Product dose omission issue [Unknown]
  - Infusion site rash [Unknown]

NARRATIVE: CASE EVENT DATE: 20230927
